FAERS Safety Report 7035899-6 (Version None)
Quarter: 2010Q4

REPORT INFORMATION
  Report Type: 
  Country: None (occurrence: None)
  Receive Date: 20101008
  Receipt Date: 20100923
  Transmission Date: 20110411
  Serious: Yes (Other)
  Sender: FDA-Public Use
  Company Number: PHHY2010US64050

PATIENT

DRUGS (1)
  1. AFINITOR [Suspect]
     Indication: CARCINOID TUMOUR

REACTIONS (2)
  - ARTERIAL DISORDER [None]
  - INFLAMMATION [None]
